FAERS Safety Report 24437262 (Version 1)
Quarter: 2024Q4

REPORT INFORMATION
  Report Type: Spontaneous
  Country: GB (occurrence: GB)
  Receive Date: 20241015
  Receipt Date: 20241015
  Transmission Date: 20250115
  Serious: Yes (Hospitalization)
  Sender: CELLTRION
  Company Number: GB-CELLTRION INC.-2024GB024623

PATIENT

DRUGS (1)
  1. YUFLYMA [Suspect]
     Active Substance: ADALIMUMAB-AATY
     Indication: Psoriatic arthropathy
     Dosage: 40 MG PFP
     Route: 058

REACTIONS (5)
  - Hospitalisation [Unknown]
  - Injection site mass [Unknown]
  - Anxiety [Unknown]
  - Illness [Unknown]
  - Intentional dose omission [Unknown]
